FAERS Safety Report 19493298 (Version 1)
Quarter: 2021Q3

REPORT INFORMATION
  Report Type: Report from Study
  Country: IN (occurrence: IN)
  Receive Date: 20210705
  Receipt Date: 20210705
  Transmission Date: 20211014
  Serious: Yes (Death)
  Sender: FDA-Public Use
  Company Number: NVSC2021IN062914

PATIENT
  Age: 62 Year
  Sex: Female
  Weight: 54 kg

DRUGS (1)
  1. KRYXANA [Suspect]
     Active Substance: RIBOCICLIB
     Indication: BREAST CANCER METASTATIC
     Dosage: 400 MG, QD
     Route: 048
     Dates: start: 20210303

REACTIONS (2)
  - Haemoglobin decreased [Unknown]
  - Death [Fatal]

NARRATIVE: CASE EVENT DATE: 20210308
